FAERS Safety Report 14110634 (Version 3)
Quarter: 2018Q1

REPORT INFORMATION
  Report Type: Report from Study
  Country: None (occurrence: CA)
  Receive Date: 20171020
  Receipt Date: 20180219
  Transmission Date: 20180508
  Serious: Yes (Hospitalization, Other)
  Sender: FDA-Public Use
  Company Number: CA-ABBVIE-17K-028-2122210-00

PATIENT
  Age: 58 Year
  Sex: Female

DRUGS (1)
  1. HUMIRA [Suspect]
     Active Substance: ADALIMUMAB
     Indication: CROHN^S DISEASE
     Route: 058
     Dates: start: 20140403, end: 201709

REACTIONS (7)
  - Intestinal resection [Recovering/Resolving]
  - Infection [Recovering/Resolving]
  - Abdominal adhesions [Recovering/Resolving]
  - Fatigue [Not Recovered/Not Resolved]
  - Fistula [Unknown]
  - Gastrointestinal disorder [Recovering/Resolving]
  - Abdominal abscess [Recovering/Resolving]

NARRATIVE: CASE EVENT DATE: 2017
